FAERS Safety Report 8541858-4 (Version None)
Quarter: 2012Q3

REPORT INFORMATION
  Report Type: 
  Country: None (occurrence: None)
  Receive Date: 20120726
  Receipt Date: 20110909
  Transmission Date: 20120928
  Serious: No
  Sender: FDA-Public Use
  Company Number: US-ASTRAZENECA-2011SE54357

PATIENT
  Age: 27 Year
  Sex: Male
  Weight: 104.3 kg

DRUGS (7)
  1. CADAPINE [Concomitant]
  2. ROBAXIN [Concomitant]
     Indication: MUSCLE RELAXANT THERAPY
     Dosage: 750 MG DAILY, THREE TIMES A DAY.
  3. AMBIENT [Concomitant]
     Indication: SLEEP DISORDER
  4. SEROQUEL XR [Suspect]
     Indication: SLEEP DISORDER
     Route: 048
     Dates: start: 20080101
  5. METFORMIN HYDROCHLORIDE [Concomitant]
     Indication: DIABETES MELLITUS
     Dosage: 500 MG DAILY, TWO TIMES A DAY.
  6. NORCOM [Concomitant]
  7. TRAMADOL HYDROCHLORIDE [Concomitant]
     Indication: PAIN

REACTIONS (3)
  - DIABETES MELLITUS [None]
  - THERAPEUTIC RESPONSE DECREASED [None]
  - OFF LABEL USE [None]
